FAERS Safety Report 18760390 (Version 2)
Quarter: 2021Q2

REPORT INFORMATION
  Report Type: Spontaneous
  Country: JP (occurrence: JP)
  Receive Date: 20210119
  Receipt Date: 20210426
  Transmission Date: 20210717
  Serious: Yes (Hospitalization)
  Sender: FDA-Public Use
  Company Number: JP-MYOVANT SCIENCES GMBH-2020MYSCI1000016

PATIENT
  Age: 23 Year
  Sex: Female

DRUGS (4)
  1. PLANOVAR [Concomitant]
     Active Substance: ETHINYL ESTRADIOL\NORGESTREL
     Indication: INTERMENSTRUAL BLEEDING
     Dosage: UNK
     Route: 048
     Dates: start: 20200720, end: 20200803
  2. AZITHROMYCIN ANHYDROUS. [Concomitant]
     Active Substance: AZITHROMYCIN ANHYDROUS
     Indication: CHLAMYDIAL INFECTION
     Dosage: UNK
     Route: 048
     Dates: start: 20200729, end: 20200729
  3. RELUMINA [Suspect]
     Active Substance: RELUGOLIX
     Indication: ENDOMETRIOSIS
     Dosage: 40 MILLIGRAM
     Route: 048
     Dates: start: 20200729, end: 20201111
  4. LOXOPROFEN [Concomitant]
     Active Substance: LOXOPROFEN
     Indication: ABDOMINAL PAIN
     Dosage: UNK
     Route: 048
     Dates: start: 20200729, end: 20201027

REACTIONS (2)
  - Ovarian cyst ruptured [Recovering/Resolving]
  - Off label use [None]

NARRATIVE: CASE EVENT DATE: 20201015
